FAERS Safety Report 17761378 (Version 2)
Quarter: 2020Q2

REPORT INFORMATION
  Report Type: Report from Study
  Country: CO (occurrence: CO)
  Receive Date: 20200508
  Receipt Date: 20200516
  Transmission Date: 20200714
  Serious: Yes (Death, Hospitalization, Other)
  Sender: FDA-Public Use
  Company Number: CO-UCBSA-2020018536

PATIENT
  Age: 48 Year
  Sex: Female

DRUGS (1)
  1. CERTOLIZUMAB PEGOL [Suspect]
     Active Substance: CERTOLIZUMAB PEGOL
     Indication: RHEUMATOID ARTHRITIS
     Dosage: 400 MILLIGRAM, EV 4 WEEKS
     Route: 058
     Dates: start: 20180517, end: 20200423

REACTIONS (6)
  - Fall [Unknown]
  - Macule [Unknown]
  - Cardio-respiratory arrest [Fatal]
  - Asthenia [Unknown]
  - Altered state of consciousness [Unknown]
  - Bronchitis [Unknown]

NARRATIVE: CASE EVENT DATE: 202004
